FAERS Safety Report 18472252 (Version 2)
Quarter: 2020Q4

REPORT INFORMATION
  Report Type: Other
  Country: DE (occurrence: DE)
  Receive Date: 20201106
  Receipt Date: 20201207
  Transmission Date: 20210114
  Serious: Yes (Hospitalization)
  Sender: FDA-Public Use
  Company Number: DE-ROCHE-2702070

PATIENT
  Age: 80 Year
  Sex: Female
  Weight: 48 kg

DRUGS (4)
  1. TRASTUZUMAB. [Suspect]
     Active Substance: TRASTUZUMAB
     Indication: BREAST CANCER
     Dosage: ONGOING?DATE OF LAST APPLICATION PRIOR EVENT: 15/OCT/2020
     Route: 065
     Dates: start: 20200803
  2. PERTUZUMAB. [Suspect]
     Active Substance: PERTUZUMAB
     Indication: BREAST CANCER
     Dosage: DATE OF LAST APPLICATION PRIOR EVENT: 15/OCT/2020?ONGOING
     Route: 065
     Dates: start: 20200803
  3. CARBOPLATIN. [Suspect]
     Active Substance: CARBOPLATIN
     Indication: BREAST CANCER
     Dosage: DATE OF LAST APPLICATION PRIOR EVENT: 15/OCT/2020?ONGOING
     Route: 065
     Dates: start: 20200803
  4. NAB-PACLITAXEL [Suspect]
     Active Substance: PACLITAXEL
     Indication: BREAST CANCER
     Dosage: DATE OF LAST APPLICATION PRIOR EVENT: 15/OCT/2020?ONGOING
     Route: 065
     Dates: start: 20200803

REACTIONS (2)
  - Oropharyngeal candidiasis [Unknown]
  - Cystitis [Not Recovered/Not Resolved]

NARRATIVE: CASE EVENT DATE: 20201015
